FAERS Safety Report 6758823-X (Version None)
Quarter: 2010Q2

REPORT INFORMATION
  Report Type: 
  Country: None (occurrence: None)
  Receive Date: 20100607
  Receipt Date: 20100528
  Transmission Date: 20101027
  Serious: Yes (Life-Threatening)
  Sender: FDA-Public Use
  Company Number: GXKR2010JP06007

PATIENT
  Age: 53 Year
  Sex: Male

DRUGS (4)
  1. ITRACONAZOLE [Suspect]
     Indication: BRONCHOPULMONARY ASPERGILLOSIS
     Dosage: 200 MG/DAY
     Route: 048
  2. ITRACONAZOLE [Suspect]
     Dosage: 200 MG/DAY
     Route: 042
  3. CARBAZOCHROME SODIUM SULFONATE [Concomitant]
  4. TRANEXAMIC ACID [Concomitant]

REACTIONS (6)
  - DYSPNOEA [None]
  - HAEMOPERFUSION [None]
  - HAEMOPTYSIS [None]
  - MECHANICAL VENTILATION [None]
  - PLEURAL EFFUSION [None]
  - PULMONARY ALVEOLAR HAEMORRHAGE [None]
